FAERS Safety Report 9494412 (Version 2)
Quarter: 2014Q2

REPORT INFORMATION
  Report Type: Spontaneous
  Country: IT (occurrence: IT)
  Receive Date: 20130903
  Receipt Date: 20140414
  Transmission Date: 20141212
  Serious: Yes (Other)
  Sender: FDA-Public Use
  Company Number: IT-ELI_LILLY_AND_COMPANY-IT201308008694

PATIENT
  Age: 66 Year
  Sex: Male

DRUGS (2)
  1. GEMCITABINE HYDROCHLORIDE [Suspect]
     Indication: MYXOFIBROSARCOMA
     Dosage: 900 MG/M2, DAYS 1 AND 8
     Route: 065
  2. TAXOTERE [Suspect]
     Indication: MYXOFIBROSARCOMA
     Dosage: 80 MG/M2, EVERY 3 WEEKS
     Route: 065

REACTIONS (3)
  - Dysgeusia [Recovered/Resolved]
  - Mucosal inflammation [Recovered/Resolved]
  - Erythema [Recovered/Resolved]
